FAERS Safety Report 23661798 (Version 1)
Quarter: 2024Q1

REPORT INFORMATION
  Report Type: Other
  Country: GB (occurrence: GB)
  Receive Date: 20240322
  Receipt Date: 20240322
  Transmission Date: 20240409
  Serious: Yes (Hospitalization, Disabling, Other)
  Sender: FDA-Public Use
  Company Number: GB-MACLEODS PHARMACEUTICALS US LTD-MAC2024046435

PATIENT

DRUGS (1)
  1. PROPYLTHIOURACIL [Suspect]
     Active Substance: PROPYLTHIOURACIL
     Indication: Graves^ disease
     Dosage: 100 MILLIGRAM
     Route: 065
     Dates: start: 20231205, end: 20240208

REACTIONS (3)
  - Pneumonia [Recovering/Resolving]
  - Neutropenia [Recovering/Resolving]
  - Vasculitis [Recovered/Resolved]

NARRATIVE: CASE EVENT DATE: 20231205
